FAERS Safety Report 5239372-7 (Version None)
Quarter: 2007Q1

REPORT INFORMATION
  Report Type: 
  Country: None (occurrence: None)
  Receive Date: 20070216
  Receipt Date: 20070205
  Transmission Date: 20070707
  Serious: Yes (Hospitalization, Other)
  Sender: FDA-Public Use
  Company Number: PHEH2005US10681

PATIENT
  Age: 42 Year
  Sex: Female
  Weight: 50.34 kg

DRUGS (25)
  1. COUMADIN [Concomitant]
  2. TEMAZEPAM [Concomitant]
  3. PHENERGAN [Concomitant]
  4. URO-MAG [Concomitant]
     Indication: BLOOD MAGNESIUM DECREASED
     Dates: start: 20040501
  5. BENTYL [Concomitant]
  6. MORPHINE SULFATE [Concomitant]
     Indication: PAIN MANAGEMENT
  7. LOMOTIL [Concomitant]
  8. STRESS FORMULA MULTI B COMPLEX W/C 500 [Concomitant]
  9. CALCIUM WITH VITAMIN D [Concomitant]
  10. LAXATIVES [Concomitant]
  11. STOOL SOFTENER [Concomitant]
  12. SORBITOL [Concomitant]
  13. FEMARA [Concomitant]
  14. PROZAC [Concomitant]
  15. TAXOL [Concomitant]
  16. DECADRON [Concomitant]
  17. HERCEPTIN [Concomitant]
  18. BENADRYL ^PFIZER WARNER-LAMBERT^ [Concomitant]
  19. TAGAMET [Concomitant]
  20. POTASSIUM CHLORIDE [Concomitant]
  21. XANAX [Concomitant]
  22. NAVELBINE [Concomitant]
  23. TAMOXIFEN CITRATE [Concomitant]
     Dosage: UNK, QD
     Route: 048
     Dates: start: 19950101
  24. AMITRIPTYLINE HCL [Concomitant]
  25. ZOMETA [Suspect]
     Dosage: 4 MG, QMO
     Route: 042
     Dates: start: 20031001, end: 20050315

REACTIONS (22)
  - ASTHENIA [None]
  - BLOOD MAGNESIUM DECREASED [None]
  - BONE DEBRIDEMENT [None]
  - DELIRIUM [None]
  - DIARRHOEA [None]
  - DIZZINESS [None]
  - GINGIVITIS [None]
  - HEADACHE [None]
  - ILEUS [None]
  - MALIGNANT NEOPLASM PROGRESSION [None]
  - MUSCULOSKELETAL PAIN [None]
  - NAUSEA [None]
  - ORAL SOFT TISSUE DISORDER [None]
  - ORTHOSTATIC HYPOTENSION [None]
  - OSTEOMYELITIS [None]
  - OSTEONECROSIS [None]
  - OSTEOPENIA [None]
  - PAIN IN JAW [None]
  - SMALL INTESTINAL OBSTRUCTION [None]
  - SOFT TISSUE INFLAMMATION [None]
  - TOOTH EXTRACTION [None]
  - VOMITING [None]
